FAERS Safety Report 10967568 (Version 1)
Quarter: 2015Q1

REPORT INFORMATION
  Report Type: Spontaneous
  Country: JP (occurrence: JP)
  Receive Date: 20150330
  Receipt Date: 20150330
  Transmission Date: 20150721
  Serious: Yes (Hospitalization)
  Sender: FDA-Public Use
  Company Number: JP-ASTRAZENECA-2015SE27775

PATIENT
  Age: 65 Year
  Sex: Female

DRUGS (3)
  1. REMIFENTANIL [Suspect]
     Active Substance: REMIFENTANIL
     Indication: MAINTENANCE OF ANAESTHESIA
  2. DESFLURANE. [Suspect]
     Active Substance: DESFLURANE
     Indication: MAINTENANCE OF ANAESTHESIA
  3. PROPOFOL. [Suspect]
     Active Substance: PROPOFOL
     Indication: GENERAL ANAESTHESIA
     Route: 042

REACTIONS (3)
  - Hypoxia [Unknown]
  - Mitral valve incompetence [Unknown]
  - Left ventricle outflow tract obstruction [Unknown]
